FAERS Safety Report 9410847 (Version 2)
Quarter: 2013Q3

REPORT INFORMATION
  Report Type: Spontaneous
  Country: DE (occurrence: DE)
  Receive Date: 20130719
  Receipt Date: 20130802
  Transmission Date: 20140515
  Serious: Yes (Other)
  Sender: FDA-Public Use
  Company Number: DE-B.I. PHARMACEUTICALS,INC./RIDGEFIELD-2013-DE-01835DE

PATIENT
  Age: 77 Year
  Sex: Male
  Weight: 96 kg

DRUGS (8)
  1. PRADAXA [Suspect]
     Indication: ATRIAL FIBRILLATION
     Dosage: 220 NR
     Route: 048
     Dates: start: 201204
  2. CARVEDILOL [Concomitant]
     Dosage: 12.5 MG
  3. PANTOPRAZOL [Concomitant]
  4. NOVAMINSULFON [Concomitant]
     Indication: ARTHRALGIA
  5. RAMIPRIL [Concomitant]
  6. SIMVASTATIN [Concomitant]
     Dosage: 20 MG
  7. TAMSULAOSIN [Concomitant]
     Indication: BENIGN PROSTATIC HYPERPLASIA
  8. VALSARTAN [Concomitant]
     Dosage: 160 MG

REACTIONS (1)
  - Gamma-glutamyltransferase increased [Not Recovered/Not Resolved]
